FAERS Safety Report 5045814-2 (Version None)
Quarter: 2006Q2

REPORT INFORMATION
  Report Type: 
  Country: None (occurrence: None)
  Receive Date: 20060601
  Receipt Date: 20060213
  Transmission Date: 20061013
  Serious: No
  Sender: FDA-Public Use
  Company Number: 2005-BP-21697BP

PATIENT
  Age: 66 Year
  Sex: Female

DRUGS (7)
  1. SPIRIVA [Suspect]
     Indication: CHRONIC OBSTRUCTIVE PULMONARY DISEASE
     Dosage: 18 MCG (18 MCG, 1 IN 1 D), IH
     Route: 055
     Dates: start: 20051101
  2. SPIRIVA [Suspect]
  3. CELEBREX [Concomitant]
  4. FOLIC ACID [Concomitant]
  5. TRAMADOL HCL [Concomitant]
  6. ALBUTEROL SPIROS [Concomitant]
  7. METHOTREXATE [Concomitant]

REACTIONS (1)
  - DYSGEUSIA [None]
